FAERS Safety Report 4721655-8 (Version None)
Quarter: 2005Q3

REPORT INFORMATION
  Report Type: 
  Country: None (occurrence: None)
  Receive Date: 20050721
  Receipt Date: 20050204
  Transmission Date: 20060218
  Serious: Yes (Other)
  Sender: FDA-Public Use
  Company Number: US-BRISTOL-MYERS SQUIBB COMPANY-12849923

PATIENT
  Sex: Male

DRUGS (7)
  1. COUMADIN [Suspect]
     Dosage: CURRENT DOSAGE = 2.5 MG
  2. ZOCOR [Concomitant]
  3. RELAFEN [Concomitant]
  4. ASPIRIN [Concomitant]
  5. GLIPIZIDE [Concomitant]
  6. METFORMIN HCL [Concomitant]
  7. MECLIZINE [Concomitant]

REACTIONS (1)
  - INTERNATIONAL NORMALISED RATIO INCREASED [None]
